FAERS Safety Report 12914135 (Version 3)
Quarter: 2017Q2

REPORT INFORMATION
  Report Type: Spontaneous
  Country: US (occurrence: US)
  Receive Date: 20161106
  Receipt Date: 20170529
  Transmission Date: 20170830
  Serious: Yes (Other)
  Sender: FDA-Public Use
  Company Number: US-ASTRAZENECA-2016SF09369

PATIENT
  Age: 834 Month
  Sex: Male
  Weight: 80.7 kg

DRUGS (3)
  1. BYDUREON [Suspect]
     Active Substance: EXENATIDE
     Indication: TYPE 2 DIABETES MELLITUS
     Route: 058
     Dates: start: 201605, end: 2016
  2. TRULICITY [Concomitant]
     Active Substance: DULAGLUTIDE
  3. BENADRYL [Concomitant]
     Active Substance: DIPHENHYDRAMINE HYDROCHLORIDE
     Indication: HYPERSENSITIVITY
     Dosage: AS REQUIRED
     Route: 048

REACTIONS (8)
  - Angina pectoris [Unknown]
  - Blood glucose abnormal [Unknown]
  - Abdominal pain [Unknown]
  - Injection site pain [Unknown]
  - Weight decreased [Unknown]
  - Tongue neoplasm malignant stage unspecified [Unknown]
  - Diarrhoea [Unknown]
  - Depressed mood [Unknown]

NARRATIVE: CASE EVENT DATE: 201612
